FAERS Safety Report 23454554 (Version 1)
Quarter: 2024Q1

REPORT INFORMATION
  Report Type: Spontaneous
  Country: NZ (occurrence: NZ)
  Receive Date: 20240130
  Receipt Date: 20240130
  Transmission Date: 20240410
  Serious: Yes (Hospitalization)
  Sender: FDA-Public Use
  Company Number: NZ-TEVA-VS-3148695

PATIENT
  Age: 76 Year
  Sex: Female

DRUGS (14)
  1. DEXMEDETOMIDINE [Suspect]
     Active Substance: DEXMEDETOMIDINE
     Indication: Cancer pain
     Dosage: INFUSION 0.25 ML/HOUR (28 UG/ML), TITRATING TO 1 ML/HOUR OVER THE FIRST HOUR OF INFUSION. LATER I...
     Route: 058
  2. MIDAZOLAM [Concomitant]
     Active Substance: MIDAZOLAM
     Indication: Cancer pain
     Dosage: INFUSION
     Route: 058
  3. MORPHINE [Suspect]
     Active Substance: MORPHINE
     Indication: Cancer pain
     Route: 065
  4. LIDOCAINE [Concomitant]
     Active Substance: LIDOCAINE
     Indication: Cancer pain
     Route: 065
  5. LIDOCAINE [Concomitant]
     Active Substance: LIDOCAINE
     Indication: Cancer pain
     Route: 065
  6. FENTANYL [Suspect]
     Active Substance: FENTANYL\FENTANYL CITRATE
     Indication: Cancer pain
     Route: 065
  7. METHADONE [Suspect]
     Active Substance: METHADONE HYDROCHLORIDE
     Indication: Cancer pain
     Dosage: INFUSION
     Route: 058
  8. METHADONE [Suspect]
     Active Substance: METHADONE HYDROCHLORIDE
     Indication: Cancer pain
     Dosage: INFUSION 3 TIMES A DAY
     Route: 058
  9. METHADONE [Suspect]
     Active Substance: METHADONE HYDROCHLORIDE
     Indication: Cancer pain
     Dosage: THREE TIMES A DAY
     Route: 048
  10. KETAMINE [Suspect]
     Active Substance: KETAMINE
     Indication: Cancer pain
     Dosage: INFUSION, DURATION: 2 DAYS
     Route: 058
  11. KETAMINE [Suspect]
     Active Substance: KETAMINE
     Indication: Cancer pain
     Dosage: INFUSION
     Route: 058
  12. PREGABALIN [Suspect]
     Active Substance: PREGABALIN
     Indication: Cancer pain
     Route: 065
  13. DEXAMETHASONE [Suspect]
     Active Substance: DEXAMETHASONE
     Indication: Cancer pain
     Route: 065
  14. HALOPERIDOL [Suspect]
     Active Substance: HALOPERIDOL
     Indication: Hallucination, visual
     Route: 065

REACTIONS (10)
  - Drug ineffective [Unknown]
  - Drug withdrawal syndrome [Recovered/Resolved]
  - Drug tolerance decreased [Unknown]
  - Cancer pain [Unknown]
  - Overdose [Unknown]
  - Hallucination, visual [Unknown]
  - Stupor [Recovered/Resolved]
  - Rebound effect [Unknown]
  - Pallor [Recovered/Resolved]
  - Medication error [Unknown]
